FAERS Safety Report 9649884 (Version 1)
Quarter: 2013Q4

REPORT INFORMATION
  Report Type: Spontaneous
  Country: US (occurrence: US)
  Receive Date: 20131028
  Receipt Date: 20131028
  Transmission Date: 20140711
  Serious: Yes (Other)
  Sender: FDA-Public Use
  Company Number: US-NAPPMUNDI-USA-2013-0100597

PATIENT
  Sex: Male

DRUGS (2)
  1. OXYCONTIN TABLETS [Suspect]
     Indication: DRUG ABUSE
     Route: 065
  2. HEROIN [Suspect]
     Indication: SUBSTANCE ABUSE
     Route: 065

REACTIONS (1)
  - Substance abuse [Recovered/Resolved]
